FAERS Safety Report 4439597-4 (Version None)
Quarter: 2004Q3

REPORT INFORMATION
  Report Type: 
  Country: None (occurrence: None)
  Receive Date: 20040902
  Receipt Date: 20040825
  Transmission Date: 20050211
  Serious: Yes (Death)
  Sender: FDA-Public Use
  Company Number: 200412766JP

PATIENT
  Age: 60 Year
  Sex: Male
  Weight: 58.5 kg

DRUGS (4)
  1. TAXOTERE [Suspect]
     Indication: OESOPHAGEAL CARCINOMA
     Route: 041
     Dates: start: 20030617, end: 20030617
  2. KYTRIL [Concomitant]
     Indication: VOMITING
     Route: 041
     Dates: start: 20030617, end: 20030617
  3. CHLOR-TRIMETON [Concomitant]
     Indication: HYPERSENSITIVITY
     Route: 041
     Dates: start: 20030617, end: 20030617
  4. CHLOR-TRIMETON [Concomitant]
     Indication: PROPHYLAXIS
     Route: 041
     Dates: start: 20030617, end: 20030617

REACTIONS (12)
  - BLOOD ALBUMIN DECREASED [None]
  - BLOOD ALKALINE PHOSPHATASE INCREASED [None]
  - BLOOD BILIRUBIN INCREASED [None]
  - BLOOD SODIUM DECREASED [None]
  - BLOOD UREA INCREASED [None]
  - BONE MARROW DEPRESSION [None]
  - C-REACTIVE PROTEIN INCREASED [None]
  - DRUG INEFFECTIVE [None]
  - FEBRILE NEUTROPENIA [None]
  - PROTEIN TOTAL DECREASED [None]
  - SEPSIS [None]
  - THERAPY NON-RESPONDER [None]
